FAERS Safety Report 7352881-X (Version None)
Quarter: 2011Q1

REPORT INFORMATION
  Report Type: 
  Country: None (occurrence: None)
  Receive Date: 20110315
  Receipt Date: 20110302
  Transmission Date: 20110831
  Serious: Yes (Hospitalization, Other)
  Sender: FDA-Public Use
  Company Number: PHFR2010GB04478

PATIENT
  Sex: Female

DRUGS (3)
  1. PREMARIN [Concomitant]
     Route: 048
  2. CLOZARIL [Suspect]
     Dosage: 100 MG, QD
     Route: 048
     Dates: start: 20090721
  3. CLOZARIL [Suspect]
     Indication: SCHIZOPHRENIA
     Dosage: 300 MG, QD
     Route: 048
     Dates: start: 20090721

REACTIONS (9)
  - HYPOTENSION [None]
  - CARDIOMYOPATHY [None]
  - INFECTION [None]
  - TACHYCARDIA [None]
  - DEHYDRATION [None]
  - NEUROLEPTIC MALIGNANT SYNDROME [None]
  - DELUSION [None]
  - CONFUSIONAL STATE [None]
  - EOSINOPHILIA [None]
